FAERS Safety Report 10708944 (Version 1)
Quarter: 2015Q1

REPORT INFORMATION
  Report Type: Spontaneous
  Country: CA (occurrence: CA)
  Receive Date: 20150114
  Receipt Date: 20150114
  Transmission Date: 20150721
  Serious: Yes (Hospitalization)
  Sender: FDA-Public Use
  Company Number: CA-ROCHE-1520200

PATIENT
  Age: 30 Year
  Sex: Male

DRUGS (3)
  1. VALGANCICLOVIR HYDROCHLORIDE [Suspect]
     Active Substance: VALGANCICLOVIR HYDROCHLORIDE
     Indication: CHRONIC FATIGUE SYNDROME
     Dosage: THERAPY DURATION: 6 MONTHS
     Route: 048
  2. DULOXETINE HYDROCHLORIDE. [Suspect]
     Active Substance: DULOXETINE HYDROCHLORIDE
     Indication: DEPRESSION
     Route: 048
  3. ATIVAN [Concomitant]
     Active Substance: LORAZEPAM
     Route: 065

REACTIONS (9)
  - Depression [Unknown]
  - Generalised tonic-clonic seizure [Unknown]
  - Psychotic disorder [Unknown]
  - Insomnia [Unknown]
  - Schizophrenia [Unknown]
  - Condition aggravated [Unknown]
  - Fatigue [Unknown]
  - Anxiety [Unknown]
  - Suicidal ideation [Unknown]
